FAERS Safety Report 5299268-1 (Version None)
Quarter: 2007Q2

REPORT INFORMATION
  Report Type: 
  Country: None (occurrence: None)
  Receive Date: 20070411
  Receipt Date: 20070411
  Transmission Date: 20071010
  Serious: Yes (Life-Threatening)
  Sender: FDA-Public Use
  Company Number: None

PATIENT
  Age: 37 Year
  Sex: Female
  Weight: 102 kg

DRUGS (8)
  1. ISOVUE-300 [Suspect]
     Indication: FISTULA
     Dosage: 612 MGM ONCE ONLY IV
     Route: 042
     Dates: start: 20070321
  2. ISOVUE-300 [Suspect]
     Indication: THROMBOSIS
     Dosage: 612 MGM ONCE ONLY IV
     Route: 042
     Dates: start: 20070321
  3. CALCITRIOL [Concomitant]
  4. AVAPRO [Concomitant]
  5. TOPROL-XL [Concomitant]
  6. ASPIRIN [Concomitant]
  7. NA BICARB [Concomitant]
  8. INSULIN [Concomitant]

REACTIONS (5)
  - CONTRAST MEDIA REACTION [None]
  - DIZZINESS [None]
  - FEELING HOT [None]
  - PULSE ABSENT [None]
  - RESPIRATORY ARREST [None]
